FAERS Safety Report 20488875 (Version 1)
Quarter: 2022Q1

REPORT INFORMATION
  Report Type: Spontaneous
  Country: CA (occurrence: None)
  Receive Date: 20220218
  Receipt Date: 20220218
  Transmission Date: 20220423
  Serious: Yes (Other)
  Sender: FDA-Public Use
  Company Number: CA-PFIZER INC-202200257536

PATIENT
  Age: 62 Year
  Sex: Female

DRUGS (5)
  1. METHOTREXATE [Suspect]
     Active Substance: METHOTREXATE
     Indication: Product used for unknown indication
     Dosage: AT NIGHT
     Route: 065
     Dates: end: 202201
  2. TYLENOL EXTRA STRENGTH [Concomitant]
     Active Substance: ACETAMINOPHEN
     Dosage: DOSAGE INFO IS NOT AVAILABLE
     Route: 065
  3. QUETIAPINE [Concomitant]
     Active Substance: QUETIAPINE
     Dosage: DOSAGE INFO IS NOT AVAILABLE
     Route: 065
  4. PAROXETINE [Concomitant]
     Active Substance: PAROXETINE
     Route: 065
  5. RISPERIDONE [Concomitant]
     Active Substance: RISPERIDONE
     Route: 065

REACTIONS (13)
  - Frontotemporal dementia [Unknown]
  - Overdose [Unknown]
  - Liver function test increased [Unknown]
  - Amnesia [Unknown]
  - Arthralgia [Unknown]
  - Joint swelling [Unknown]
  - Musculoskeletal stiffness [Unknown]
  - Ocular hyperaemia [Unknown]
  - Intervertebral disc disorder [Unknown]
  - Sacroiliac joint dysfunction [Unknown]
  - Spondyloarthropathy [Unknown]
  - C-reactive protein increased [Unknown]
  - Cognitive disorder [Unknown]
